FAERS Safety Report 5012901-4 (Version None)
Quarter: 2006Q2

REPORT INFORMATION
  Report Type: 
  Country: None (occurrence: None)
  Receive Date: 20060525
  Receipt Date: 20060525
  Transmission Date: 20061013
  Serious: Yes (Hospitalization)
  Sender: FDA-Public Use
  Company Number: None

PATIENT
  Age: 57 Year
  Sex: Male
  Weight: 54.8852 kg

DRUGS (12)
  1. ERBITUX [Suspect]
     Indication: NEOPLASM MALIGNANT
     Dosage: SEE IMAGE
     Route: 042
     Dates: start: 20060509
  2. ERBITUX [Suspect]
     Indication: NEOPLASM MALIGNANT
     Dosage: SEE IMAGE
     Route: 042
     Dates: start: 20060516
  3. CISPLATIN [Suspect]
     Indication: NEOPLASM MALIGNANT
     Dosage: NOT DOSED AS OF A/E
  4. NEXIUM [Concomitant]
  5. FOLIC ACID [Concomitant]
  6. THIAMINE [Concomitant]
  7. MTV [Concomitant]
  8. COLACE [Concomitant]
  9. LORTAB [Concomitant]
  10. DURAGESIC-100 [Concomitant]
  11. ANUSOL [Concomitant]
  12. DUONEB [Concomitant]

REACTIONS (5)
  - ABDOMINAL PAIN [None]
  - MALAISE [None]
  - PRODUCTIVE COUGH [None]
  - SPUTUM DISCOLOURED [None]
  - URINARY RETENTION [None]
